FAERS Safety Report 23089574 (Version 2)
Quarter: 2023Q4

REPORT INFORMATION
  Report Type: Spontaneous
  Country: US (occurrence: US)
  Receive Date: 20231020
  Receipt Date: 20231117
  Transmission Date: 20240110
  Serious: Yes (Disabling)
  Sender: FDA-Public Use
  Company Number: US-SANOFI-01806146

PATIENT
  Age: 50 Year
  Sex: Male
  Weight: 75.7 kg

DRUGS (2)
  1. DUPIXENT [Suspect]
     Active Substance: DUPILUMAB
     Indication: Eczema
     Dosage: 600 MG, 1X
     Dates: start: 20230928, end: 20230928
  2. DUPIXENT [Suspect]
     Active Substance: DUPILUMAB
     Dosage: 300 MG
     Route: 058
     Dates: start: 2023, end: 2023

REACTIONS (4)
  - Vision blurred [Recovered/Resolved]
  - Arthralgia [Recovered/Resolved]
  - Muscular weakness [Unknown]
  - Peripheral swelling [Unknown]

NARRATIVE: CASE EVENT DATE: 20230928
